FAERS Safety Report 10646477 (Version 1)
Quarter: 2014Q4

REPORT INFORMATION
  Report Type: Spontaneous
  Country: US (occurrence: US)
  Receive Date: 20141211
  Receipt Date: 20141211
  Transmission Date: 20150529
  Serious: No
  Sender: FDA-Public Use
  Company Number: US-GLAXOSMITHKLINE-US2014GSK019811

PATIENT
  Age: 74 Year
  Sex: Female

DRUGS (11)
  1. FISH OIL SUPPLEMENT [Concomitant]
  2. ADVAIR DISKUS [Suspect]
     Active Substance: FLUTICASONE PROPIONATE\SALMETEROL XINAFOATE
     Dosage: 250/50
     Route: 055
     Dates: start: 2010
  3. PRED FORTE EYE DROPS [Concomitant]
  4. ACID REFLUX MEDICATION (ACID CONTROL NOS) [Concomitant]
  5. CALCIUM [Concomitant]
     Active Substance: CALCIUM
  6. LORTAB (NOS) [Concomitant]
  7. OXYGEN THERAPY [Concomitant]
     Active Substance: OXYGEN
  8. TOPROL XL [Concomitant]
     Active Substance: METOPROLOL SUCCINATE
  9. ALBUTEROL WITH NEBULIZER [Concomitant]
  10. ALBUTEROL INHALER [Concomitant]
     Active Substance: ALBUTEROL
  11. CHONDROITIN SULFATE (BOVINE)\GLUCOSAMINE SULFATE [Concomitant]
     Active Substance: CHONDROITIN SULFATE (BOVINE)\GLUCOSAMINE SULFATE

REACTIONS (7)
  - Dyspnoea [Not Recovered/Not Resolved]
  - Chest pain [Not Recovered/Not Resolved]
  - Drug dose omission [Unknown]
  - Chest discomfort [Not Recovered/Not Resolved]
  - Bronchial disorder [Not Recovered/Not Resolved]
  - Dysphonia [Not Recovered/Not Resolved]
  - Pain [Not Recovered/Not Resolved]

NARRATIVE: CASE EVENT DATE: 20141103
